FAERS Safety Report 8179709-2 (Version None)
Quarter: 2012Q1

REPORT INFORMATION
  Report Type: 
  Country: None (occurrence: None)
  Receive Date: 20120302
  Receipt Date: 20120221
  Transmission Date: 20120608
  Serious: Yes (Hospitalization, Other)
  Sender: FDA-Public Use
  Company Number: US-ELI_LILLY_AND_COMPANY-US201108001594

PATIENT
  Sex: Female

DRUGS (14)
  1. FORTEO [Suspect]
     Indication: OSTEOPOROSIS
     Dosage: 20 UG, QD
     Route: 065
     Dates: start: 20110706
  2. FORTEO [Suspect]
     Dosage: 20 UG, QD
     Route: 065
  3. IRON [Concomitant]
  4. AMBIEN [Concomitant]
     Indication: SLEEP DISORDER
     Dosage: 10 MG, UNK
  5. THE VISION FORMULA [Concomitant]
     Indication: MACULAR DEGENERATION
  6. DEPAKOTE [Concomitant]
     Indication: MIGRAINE
     Dosage: 500 MG, UNK
  7. FORTEO [Suspect]
     Dosage: 20 UG, QD
     Route: 065
  8. BACLOFEN [Concomitant]
     Indication: SLEEP DISORDER
     Dosage: 10 MG, UNK
  9. VITAMINS NOS [Concomitant]
  10. FORTEO [Suspect]
     Dosage: 20 UG, QD
     Route: 065
  11. SIMVASTATIN [Concomitant]
     Dosage: 20 MG, UNK
  12. PRILOSEC [Concomitant]
     Dosage: 20 MG, UNK
  13. VITAMIN D [Concomitant]
     Dosage: 50000 IU, UNK
  14. LEVOTHYROXINE SODIUM [Concomitant]
     Dosage: 0.88 UG, UNK

REACTIONS (9)
  - FALL [None]
  - BONE DISORDER [None]
  - OEDEMA PERIPHERAL [None]
  - WEIGHT INCREASED [None]
  - HIP FRACTURE [None]
  - FEELING ABNORMAL [None]
  - ARTHRALGIA [None]
  - PAIN [None]
  - GAIT DISTURBANCE [None]
